FAERS Safety Report 6083171-3 (Version None)
Quarter: 2009Q1

REPORT INFORMATION
  Report Type: 
  Country: None (occurrence: None)
  Receive Date: 20090219
  Receipt Date: 20090211
  Transmission Date: 20090719
  Serious: Yes (Other)
  Sender: FDA-Public Use
  Company Number: PHHY2009IE05003

PATIENT
  Age: 79 Year
  Sex: Female

DRUGS (9)
  1. LAMISIL [Suspect]
     Indication: ONYCHOMYCOSIS
     Dosage: 250 MG UNK
     Route: 048
     Dates: start: 20081104, end: 20081202
  2. AMLODIPINE [Concomitant]
  3. METOPROLOL TARTRATE [Concomitant]
  4. PROTHIADEN [Concomitant]
  5. DIOVAN [Concomitant]
     Dosage: 80 MG UNK
     Route: 048
  6. ELTROXIN [Concomitant]
  7. LANSOPRAZOLE [Concomitant]
  8. FOSAMAX [Concomitant]
     Dosage: UNK
  9. CRESTOR [Concomitant]

REACTIONS (2)
  - LIVER FUNCTION TEST ABNORMAL [None]
  - PETECHIAE [None]
